FAERS Safety Report 5613160-1 (Version None)
Quarter: 2008Q1

REPORT INFORMATION
  Report Type: 
  Country: None (occurrence: None)
  Receive Date: 20080129
  Receipt Date: 20080102
  Transmission Date: 20080703
  Serious: Yes (Hospitalization)
  Sender: FDA-Public Use
  Company Number: LUP-0200

PATIENT
  Age: 84 Year
  Sex: Male

DRUGS (3)
  1. LISINOPRIL [Suspect]
     Indication: HYPERTENSION
     Dosage: 20 MG PO QD
     Route: 048
     Dates: start: 20071201
  2. LORAZEPAM [Concomitant]
  3. ACETAMINOPHEN [Concomitant]

REACTIONS (5)
  - ASTHENIA [None]
  - PALLOR [None]
  - PHARYNGEAL OEDEMA [None]
  - UNRESPONSIVE TO STIMULI [None]
  - URINE OUTPUT DECREASED [None]
